FAERS Safety Report 13240211 (Version 1)
Quarter: 2017Q1

REPORT INFORMATION
  Report Type: Spontaneous
  Country: JP (occurrence: JP)
  Receive Date: 20170216
  Receipt Date: 20170216
  Transmission Date: 20170428
  Serious: Yes (Other)
  Sender: FDA-Public Use
  Company Number: JP-PFIZER INC-2014114161

PATIENT
  Age: 41 Year
  Sex: Female

DRUGS (3)
  1. LYRICA [Suspect]
     Active Substance: PREGABALIN
     Dosage: 150 MG, DAILY
     Route: 048
     Dates: start: 20131109
  2. LYRICA [Suspect]
     Active Substance: PREGABALIN
     Dosage: 50 MG, 3X/DAY
     Route: 048
     Dates: start: 20140111
  3. LYRICA [Suspect]
     Active Substance: PREGABALIN
     Dosage: OCCASIONALLY AT AN ADJUSTED DOSE (1 OR 2 CAPSULES)
     Route: 048
     Dates: start: 201403, end: 20140421

REACTIONS (1)
  - Abortion spontaneous [Unknown]
